FAERS Safety Report 11135620 (Version 1)
Quarter: 2015Q2

REPORT INFORMATION
  Report Type: Spontaneous
  Country: US (occurrence: US)
  Receive Date: 20150526
  Receipt Date: 20150526
  Transmission Date: 20150821
  Serious: No
  Sender: FDA-Public Use
  Company Number: US-MALLINCKRODT-T201502257

PATIENT
  Sex: Female

DRUGS (1)
  1. H.P. ACTHAR [Suspect]
     Active Substance: CORTICOTROPIN
     Indication: MULTIPLE SCLEROSIS
     Dosage: 40 UNITS EVERY DAY FOR 4 DAYS; AFTER 4TH DAY, 80 UNITS FOR TOTAL OF 8 DAYS
     Route: 058
     Dates: start: 20150226

REACTIONS (5)
  - Weight increased [Unknown]
  - Headache [Unknown]
  - Urinary incontinence [Unknown]
  - Hypertension [Unknown]
  - Visual impairment [Unknown]
